FAERS Safety Report 14804507 (Version 1)
Quarter: 2018Q2

REPORT INFORMATION
  Report Type: Spontaneous
  Country: PT (occurrence: PT)
  Receive Date: 20180425
  Receipt Date: 20180425
  Transmission Date: 20180711
  Serious: Yes (Hospitalization)
  Sender: FDA-Public Use
  Company Number: PT-MYLANLABS-2018M1023544

PATIENT
  Age: 15 Year
  Sex: Female

DRUGS (7)
  1. DESMOPRESSIN [Suspect]
     Active Substance: DESMOPRESSIN
     Dosage: UNK
  2. METHYLPHENIDATE. [Concomitant]
     Active Substance: METHYLPHENIDATE
     Indication: ATTENTION DEFICIT/HYPERACTIVITY DISORDER
     Dosage: 18 MG, UNK
     Route: 065
  3. DESMOPRESSIN [Suspect]
     Active Substance: DESMOPRESSIN
     Indication: HORMONE REPLACEMENT THERAPY
     Dosage: .2 MG, UNK
     Route: 065
  4. ESTRADIOL. [Concomitant]
     Active Substance: ESTRADIOL
     Indication: HORMONE REPLACEMENT THERAPY
     Dosage: 50 ?G, UNK
     Route: 050
  5. HYDROCORTISONE. [Concomitant]
     Active Substance: HYDROCORTISONE
     Indication: HORMONE REPLACEMENT THERAPY
     Dosage: 3.8 MG/M2, UNK
     Route: 065
  6. ESTRADIOL. [Concomitant]
     Active Substance: ESTRADIOL
     Dosage: UNK
  7. LEVOTHYROXINE. [Concomitant]
     Active Substance: LEVOTHYROXINE
     Indication: HORMONE REPLACEMENT THERAPY
     Dosage: 112 MG, UNK
     Route: 065

REACTIONS (4)
  - Hyponatraemia [Recovered/Resolved]
  - Water intoxication [Recovered/Resolved]
  - Altered state of consciousness [Recovered/Resolved]
  - Brain oedema [Recovered/Resolved]
